FAERS Safety Report 13864147 (Version 2)
Quarter: 2017Q3

REPORT INFORMATION
  Report Type: Report from Study
  Country: US (occurrence: US)
  Receive Date: 20170814
  Receipt Date: 20170816
  Transmission Date: 20171127
  Serious: Yes (Hospitalization, Other)
  Sender: FDA-Public Use
  Company Number: US-BIOGEN-2013BI118521

PATIENT
  Age: 72 Year
  Sex: Female

DRUGS (4)
  1. AVONEX [Suspect]
     Active Substance: INTERFERON BETA-1A
     Route: 030
     Dates: start: 20131211
  2. AVONEX [Suspect]
     Active Substance: INTERFERON BETA-1A
     Indication: MULTIPLE SCLEROSIS
     Route: 030
  3. AVONEX [Suspect]
     Active Substance: INTERFERON BETA-1A
     Route: 030
     Dates: start: 19970601
  4. AVONEX [Suspect]
     Active Substance: INTERFERON BETA-1A
     Route: 030
     Dates: start: 20031028, end: 20131211

REACTIONS (7)
  - Lower limb fracture [Not Recovered/Not Resolved]
  - Fall [Recovered/Resolved]
  - Ankle fracture [Not Recovered/Not Resolved]
  - Poor peripheral circulation [Unknown]
  - Skin cancer [Recovered/Resolved]
  - Disorientation [Unknown]
  - Anaemia [Unknown]

NARRATIVE: CASE EVENT DATE: 2013
